FAERS Safety Report 9014142 (Version 1)
Quarter: 2013Q1

REPORT INFORMATION
  Report Type: Spontaneous
  Country: US (occurrence: US)
  Receive Date: 20130115
  Receipt Date: 20130115
  Transmission Date: 20140127
  Serious: Yes (Other)
  Sender: FDA-Public Use
  Company Number: US-009507513-1301USA003572

PATIENT
  Age: 25 Year
  Sex: Male

DRUGS (7)
  1. MONTELUKAST SODIUM [Suspect]
     Route: 065
  2. FORMOTEROL FUMARATE [Suspect]
     Route: 065
  3. BUDESONIDE [Suspect]
     Route: 065
  4. TRIAMCINOLONE [Suspect]
     Route: 065
  5. TERBUTALINE SULFATE [Suspect]
     Route: 065
  6. CETIRIZINE HYDROCHLORIDE [Concomitant]
     Indication: PRODUCT USED FOR UNKNOWN INDICATION
  7. ALPRAZOLAM [Concomitant]
     Route: 065

REACTIONS (2)
  - Aggression [Unknown]
  - Insomnia [Unknown]
